FAERS Safety Report 23805134 (Version 2)
Quarter: 2024Q2

REPORT INFORMATION
  Report Type: Spontaneous
  Country: US (occurrence: US)
  Receive Date: 20240502
  Receipt Date: 20240506
  Transmission Date: 20240716
  Serious: Yes (Other)
  Sender: FDA-Public Use
  Company Number: US-JNJFOC-20240465864

PATIENT
  Age: 74 Year
  Sex: Female

DRUGS (2)
  1. RISPERDAL [Suspect]
     Active Substance: RISPERIDONE
     Indication: Hallucination, visual
     Route: 048
  2. RISPERDAL [Suspect]
     Active Substance: RISPERIDONE
     Indication: Delusion
     Dosage: 0.25 MG TO 2 MG
     Route: 048
     Dates: start: 20220906

REACTIONS (2)
  - Dementia with Lewy bodies [Not Recovered/Not Resolved]
  - Treatment noncompliance [Unknown]
